FAERS Safety Report 8964204 (Version 3)
Quarter: 2013Q1

REPORT INFORMATION
  Report Type: Spontaneous
  Country: US (occurrence: US)
  Receive Date: 20121214
  Receipt Date: 20130315
  Transmission Date: 20140127
  Serious: Yes (Death)
  Sender: FDA-Public Use
  Company Number: US-PFIZER INC-2012313343

PATIENT
  Age: 100 Year
  Sex: Male

DRUGS (2)
  1. SUTENT [Suspect]
     Indication: RENAL CANCER METASTATIC
     Dosage: 50 MG, QDX4 WKS THEN 2 WKS OFF
     Route: 048
     Dates: start: 20120214, end: 20120524
  2. SUTENT [Suspect]
     Dosage: 50 MG, 1X/DAY
     Dates: start: 20120221

REACTIONS (7)
  - Disease progression [Fatal]
  - Renal cancer metastatic [Fatal]
  - Mucosal inflammation [Recovered/Resolved]
  - Decreased appetite [Unknown]
  - Weight decreased [Unknown]
  - Dehydration [Unknown]
  - Drug intolerance [Unknown]
